FAERS Safety Report 5408862-6 (Version None)
Quarter: 2007Q3

REPORT INFORMATION
  Report Type: 
  Country: None (occurrence: None)
  Receive Date: 20070808
  Receipt Date: 20070803
  Transmission Date: 20080115
  Serious: Yes (Hospitalization)
  Sender: FDA-Public Use
  Company Number: FR-ABBOTT-06P-056-0343569-00

PATIENT
  Age: 48 Year
  Sex: Male

DRUGS (2)
  1. DEPACON [Suspect]
     Indication: EPILEPSY
     Route: 042
     Dates: start: 20060814, end: 20060822
  2. HEPARIN-FRACTION, SODIUM SALT [Concomitant]
     Indication: DRUG USE FOR UNKNOWN INDICATION
     Route: 058
     Dates: start: 20060814

REACTIONS (5)
  - BLISTER [None]
  - ERYTHEMA [None]
  - MUSCULOSKELETAL PAIN [None]
  - OEDEMA PERIPHERAL [None]
  - RASH [None]
